APPROVED DRUG PRODUCT: NEVIRAPINE
Active Ingredient: NEVIRAPINE
Strength: 50MG/5ML
Dosage Form/Route: SUSPENSION;ORAL
Application: A077702 | Product #001 | TE Code: AA
Applicant: AUROBINDO PHARMA LTD
Approved: May 22, 2012 | RLD: No | RS: Yes | Type: RX